FAERS Safety Report 9056193 (Version 3)
Quarter: 2013Q2

REPORT INFORMATION
  Report Type: Spontaneous
  Country: FR (occurrence: FR)
  Receive Date: 20130205
  Receipt Date: 20130401
  Transmission Date: 20140414
  Serious: Yes (Other)
  Sender: FDA-Public Use
  Company Number: FR-GENZYME-FABR-1002997

PATIENT
  Age: 38 Year
  Sex: Female

DRUGS (2)
  1. FABRAZYME [Suspect]
     Indication: FABRY^S DISEASE
     Dosage: 0.85 MG/KG, UNK
     Route: 042
  2. AERIUS [Concomitant]
     Indication: PREMEDICATION
     Dosage: 5 MG, QD
     Route: 065

REACTIONS (4)
  - Suffocation feeling [Recovered/Resolved]
  - Hypotension [Recovered/Resolved]
  - Dyspnoea [Recovered/Resolved]
  - Headache [Recovered/Resolved]
